FAERS Safety Report 8116417-8 (Version None)
Quarter: 2012Q1

REPORT INFORMATION
  Report Type: 
  Country: None (occurrence: None)
  Receive Date: 20120206
  Receipt Date: 20120201
  Transmission Date: 20120608
  Serious: No
  Sender: FDA-Public Use
  Company Number: US-PFIZER INC-2009316072

PATIENT
  Sex: Female

DRUGS (10)
  1. CITRACAL [Concomitant]
  2. VITAMIN D [Concomitant]
  3. MULTIVITAMIN [Concomitant]
  4. NEXIUM [Concomitant]
  5. LIPITOR [Suspect]
     Dosage: UNK
  6. MORPHINE SULFATE [Suspect]
     Dosage: UNK
  7. FISH OIL [Suspect]
  8. LEVOFLOXACIN [Suspect]
  9. ENBREL [Suspect]
     Dosage: UNK
  10. ASPIRIN [Concomitant]

REACTIONS (4)
  - DRUG HYPERSENSITIVITY [None]
  - MYALGIA [None]
  - PRURITUS [None]
  - URTICARIA [None]
